FAERS Safety Report 7279790-9 (Version None)
Quarter: 2011Q1

REPORT INFORMATION
  Report Type: 
  Country: None (occurrence: None)
  Receive Date: 20110203
  Receipt Date: 20110203
  Transmission Date: 20110831
  Serious: No
  Sender: FDA-Public Use
  Company Number: None

PATIENT
  Age: 70 Year
  Sex: Female
  Weight: 50.8029 kg

DRUGS (1)
  1. ALLERGY MEDICATION 25 MG RITE AID DIPHENHYDRAMINE [Suspect]
     Indication: NASAL CONGESTION
     Dosage: 2 TABLETS EVERY 4 - 6 HOURS PO
     Route: 048
     Dates: start: 20101211, end: 20101212

REACTIONS (3)
  - RESTLESS LEGS SYNDROME [None]
  - DRUG INEFFECTIVE [None]
  - INSOMNIA [None]
